FAERS Safety Report 5262595-8 (Version None)
Quarter: 2007Q1

REPORT INFORMATION
  Report Type: 
  Country: None (occurrence: None)
  Receive Date: 20070312
  Receipt Date: 20070301
  Transmission Date: 20070707
  Serious: Yes (Disabling, Other)
  Sender: FDA-Public Use
  Company Number: NSADSS2002006200

PATIENT
  Sex: Male
  Weight: 136.08 kg

DRUGS (12)
  1. TOPAMAX [Suspect]
     Route: 048
  2. TOPAMAX [Suspect]
     Indication: DRUG USE FOR UNKNOWN INDICATION
     Route: 048
  3. ASPIRIN [Concomitant]
     Indication: DRUG USE FOR UNKNOWN INDICATION
  4. VITAMIN CAP [Concomitant]
     Indication: DRUG USE FOR UNKNOWN INDICATION
  5. VICODIN [Concomitant]
     Indication: COMPLEX REGIONAL PAIN SYNDROME
  6. VICODIN [Concomitant]
     Indication: MUSCLE SPASMS
  7. VALIUM [Concomitant]
     Indication: SLEEP DISORDER
     Route: 048
  8. VALIUM [Concomitant]
     Indication: ANXIETY
     Route: 048
  9. VALIUM [Concomitant]
     Indication: MUSCLE SPASMS
     Route: 048
  10. VALIUM [Concomitant]
     Indication: PAIN
     Route: 048
  11. HYDROCODONE [Concomitant]
     Indication: PAIN
  12. MORPHINE [Concomitant]
     Indication: PAIN

REACTIONS (15)
  - AMNESIA [None]
  - ANHIDROSIS [None]
  - AUTONOMIC NERVOUS SYSTEM IMBALANCE [None]
  - BODY TEMPERATURE INCREASED [None]
  - CONFUSIONAL STATE [None]
  - CONVULSION [None]
  - EYE DISORDER [None]
  - FEELING JITTERY [None]
  - HEADACHE [None]
  - INSOMNIA [None]
  - LIBIDO DECREASED [None]
  - PAIN [None]
  - THINKING ABNORMAL [None]
  - WEIGHT DECREASED [None]
  - WEIGHT INCREASED [None]
